FAERS Safety Report 16807131 (Version 2)
Quarter: 2020Q1

REPORT INFORMATION
  Report Type: Report from Study
  Country: ES (occurrence: ES)
  Receive Date: 20190913
  Receipt Date: 20200306
  Transmission Date: 20200409
  Serious: Yes (Hospitalization, Other)
  Sender: FDA-Public Use
  Company Number: ES-MYLANLABS-2019M1085125

PATIENT
  Age: 66 Year
  Sex: Female

DRUGS (9)
  1. PACLITAXEL. [Suspect]
     Active Substance: PACLITAXEL
     Dosage: 80 UNK
     Route: 042
     Dates: start: 20161024
  2. LEVOTIROXINA                       /00068001/ [Concomitant]
     Indication: HYPOTHYROIDISM
     Dosage: 6 MILLIGRAM PER MILLILITRE
     Route: 048
  3. LEVOFLOXACINO                      /01278901/ [Concomitant]
     Active Substance: LEVOFLOXACIN
     Dosage: 500 MILLIGRAM, QD
     Route: 065
     Dates: start: 20160512, end: 20160516
  4. PACLITAXEL. [Suspect]
     Active Substance: PACLITAXEL
     Indication: BREAST CANCER
     Dosage: STRENGTH: 6 MG/ML
     Route: 042
     Dates: start: 20160415
  5. BEVACIZUMAB. [Suspect]
     Active Substance: BEVACIZUMAB
     Indication: BREAST CANCER
     Dosage: STRENGTH: 25 MG/ML
     Route: 042
     Dates: start: 20160415
  6. PREDNISONA [Concomitant]
     Active Substance: PREDNISONE
     Dosage: 30 MILLIGRAM, QD
     Route: 048
     Dates: start: 20160524, end: 20160528
  7. BEVACIZUMAB. [Suspect]
     Active Substance: BEVACIZUMAB
     Indication: PRODUCT USED FOR UNKNOWN INDICATION
     Dosage: 10 MILLIGRAM/KILOGRAM, BIWEEKLY
     Route: 042
     Dates: start: 20160830
  8. PREDNISONA [Concomitant]
     Active Substance: PREDNISONE
     Dosage: 15 MILLIGRAM, QD
     Route: 048
     Dates: start: 20160529, end: 20160602
  9. PREDNISONA [Concomitant]
     Active Substance: PREDNISONE
     Dosage: 30 MILLIGRAM, BID
     Route: 048
     Dates: start: 20160512, end: 20160523

REACTIONS (9)
  - Infusion related reaction [Recovered/Resolved]
  - Nail toxicity [Recovered/Resolved]
  - Neutropenia [Recovered/Resolved]
  - Epistaxis [Recovered/Resolved]
  - Fatigue [Recovered/Resolved]
  - Hypertension [Recovered/Resolved]
  - Stomatitis [Recovered/Resolved]
  - Dyspnoea [Recovered/Resolved]
  - Paraesthesia [Recovered/Resolved]

NARRATIVE: CASE EVENT DATE: 20160512
